FAERS Safety Report 25153303 (Version 1)
Quarter: 2025Q2

REPORT INFORMATION
  Report Type: Spontaneous
  Country: US (occurrence: US)
  Receive Date: 20250403
  Receipt Date: 20250403
  Transmission Date: 20250716
  Serious: No
  Sender: CHATTEM
  Company Number: US-OPELLA-2025OHG008640

PATIENT
  Sex: Male

DRUGS (1)
  1. NASACORT ALLERGY 24HR [Suspect]
     Active Substance: TRIAMCINOLONE ACETONIDE
     Indication: Rhinorrhoea

REACTIONS (2)
  - Drug effect less than expected [Unknown]
  - No adverse event [Unknown]
